FAERS Safety Report 4929146-6 (Version None)
Quarter: 2006Q1

REPORT INFORMATION
  Report Type: 
  Country: None (occurrence: None)
  Receive Date: 20060301
  Receipt Date: 20060227
  Transmission Date: 20060701
  Serious: Yes (Other)
  Sender: FDA-Public Use
  Company Number: US-JNJFOC-20031100560

PATIENT
  Sex: Female

DRUGS (8)
  1. REMICADE [Suspect]
     Route: 042
     Dates: start: 20001104, end: 20030930
  2. REMICADE [Suspect]
     Indication: RHEUMATOID ARTHRITIS
     Dosage: TOTAL OF 24 INFUSIONS
     Route: 042
     Dates: start: 20001104, end: 20030930
  3. ZIAC [Concomitant]
  4. ZIAC [Concomitant]
  5. METHOTREXATE [Concomitant]
  6. FOLIC ACID [Concomitant]
  7. CELEBREX [Concomitant]
  8. DECADRON SRC [Concomitant]

REACTIONS (7)
  - BLOOD CREATINE PHOSPHOKINASE INCREASED [None]
  - DISSEMINATED TUBERCULOSIS [None]
  - HEPATIC ENZYME INCREASED [None]
  - PNEUMONIA [None]
  - RENAL IMPAIRMENT [None]
  - SEPSIS [None]
  - VENTRICULAR DYSFUNCTION [None]
